FAERS Safety Report 4821788-1 (Version None)
Quarter: 2005Q4

REPORT INFORMATION
  Report Type: 
  Country: None (occurrence: None)
  Receive Date: 20051107
  Receipt Date: 20051027
  Transmission Date: 20060501
  Serious: Yes (Hospitalization)
  Sender: FDA-Public Use
  Company Number: US-AMGEN-US155774

PATIENT
  Age: 51 Year
  Sex: Female

DRUGS (14)
  1. NEULASTA [Suspect]
     Indication: CHEMOTHERAPY
     Dates: start: 20050923
  2. VERAPAMIL [Concomitant]
  3. CYTOXAN [Concomitant]
  4. DOXIL [Concomitant]
  5. TOPAMAX [Concomitant]
  6. LEVOTHYROXINE [Concomitant]
  7. ATIVAN [Concomitant]
  8. IMITREX [Concomitant]
  9. PROTONIX [Concomitant]
  10. ZELNORM [Concomitant]
  11. REGLAN [Concomitant]
  12. ZYRTEC [Concomitant]
  13. PERCOCET [Concomitant]
  14. PROCRIT [Concomitant]
     Dates: start: 20051020

REACTIONS (2)
  - ANAEMIA [None]
  - VITAMIN B12 INCREASED [None]
